FAERS Safety Report 11399918 (Version 2)
Quarter: 2015Q3

REPORT INFORMATION
  Report Type: Spontaneous
  Country: US (occurrence: US)
  Receive Date: 20150820
  Receipt Date: 20150903
  Transmission Date: 20151125
  Serious: Yes (Other)
  Sender: FDA-Public Use
  Company Number: US-SA-2015SA123346

PATIENT
  Age: 71 Year
  Sex: Female

DRUGS (2)
  1. SOLOSTAR [Suspect]
     Active Substance: DEVICE
     Indication: TYPE 2 DIABETES MELLITUS
     Dates: start: 2013
  2. LANTUS SOLOSTAR [Suspect]
     Active Substance: INSULIN GLARGINE
     Indication: TYPE 2 DIABETES MELLITUS
     Dosage: 25 U/10 U NIGHT/ MORNING
     Route: 065
     Dates: start: 2013

REACTIONS (6)
  - Drug administration error [Unknown]
  - Cerebrovascular accident [Unknown]
  - Speech disorder [Unknown]
  - Wrong technique in product usage process [Unknown]
  - Blood glucose increased [Not Recovered/Not Resolved]
  - Road traffic accident [Unknown]

NARRATIVE: CASE EVENT DATE: 2013
